FAERS Safety Report 4366659-2 (Version None)
Quarter: 2004Q2

REPORT INFORMATION
  Report Type: 
  Country: None (occurrence: None)
  Receive Date: 20040527
  Receipt Date: 20040301
  Transmission Date: 20050107
  Serious: No
  Sender: FDA-Public Use
  Company Number: US-GLAXOSMITHKLINE-A0500634A

PATIENT
  Age: 67 Year
  Sex: Male

DRUGS (3)
  1. AVODART [Suspect]
     Indication: BENIGN PROSTATIC HYPERPLASIA
     Dosage: .5MG PER DAY
     Route: 048
  2. ARIMIDEX [Concomitant]
  3. BENICAR [Concomitant]
     Route: 065

REACTIONS (3)
  - DANDRUFF [None]
  - DRY SKIN [None]
  - ERYTHEMA [None]
